FAERS Safety Report 21833361 (Version 1)
Quarter: 2023Q1

REPORT INFORMATION
  Report Type: Spontaneous
  Country: NL (occurrence: NL)
  Receive Date: 20230107
  Receipt Date: 20230107
  Transmission Date: 20230417
  Serious: Yes (Life-Threatening, Disabling, Other)
  Sender: FDA-Public Use
  Company Number: NL-LRB-00859121

PATIENT
  Sex: Female
  Weight: 70 kg

DRUGS (1)
  1. ANASTROZOLE [Suspect]
     Active Substance: ANASTROZOLE
     Indication: Breast cancer
     Dosage: UNK, 1
     Route: 065
     Dates: start: 20220401

REACTIONS (1)
  - Suicidal ideation [Not Recovered/Not Resolved]
